FAERS Safety Report 7669228-1 (Version None)
Quarter: 2011Q3

REPORT INFORMATION
  Report Type: 
  Country: None (occurrence: None)
  Receive Date: 20110808
  Receipt Date: 20110801
  Transmission Date: 20111222
  Serious: Yes (Death, Other)
  Sender: FDA-Public Use
  Company Number: IT-ROCHE-713400

PATIENT

DRUGS (3)
  1. CISPLATIN [Suspect]
     Indication: NON-SMALL CELL LUNG CANCER
     Dosage: DAYS 1-3
     Route: 042
  2. BEVACIZUMAB [Suspect]
     Indication: NON-SMALL CELL LUNG CANCER
     Dosage: DOSE(0;2.5;5,7.5 AND 10 MG/KG)
     Route: 042
  3. ETOPOSIDE [Suspect]
     Indication: NON-SMALL CELL LUNG CANCER
     Dosage: DAYS 1-15
     Route: 048

REACTIONS (20)
  - DEPRESSION [None]
  - RENAL FAILURE [None]
  - SUDDEN DEATH [None]
  - VOMITING [None]
  - PNEUMONIA BACTERIAL [None]
  - CARDIOVASCULAR DISORDER [None]
  - LEUKOPENIA [None]
  - PULMONARY CAVITATION [None]
  - COGNITIVE DISORDER [None]
  - ASTHENIA [None]
  - VENA CAVA THROMBOSIS [None]
  - THROMBOPHLEBITIS [None]
  - ANAEMIA [None]
  - THROMBOCYTOPENIA [None]
  - STOMATITIS [None]
  - SEPSIS [None]
  - PNEUMONIA [None]
  - PYREXIA [None]
  - PULMONARY HAEMORRHAGE [None]
  - HAEMOPTYSIS [None]
